FAERS Safety Report 19298049 (Version 1)
Quarter: 2021Q2

REPORT INFORMATION
  Report Type: Spontaneous
  Country: US (occurrence: US)
  Receive Date: 20210525
  Receipt Date: 20210525
  Transmission Date: 20210717
  Serious: No
  Sender: FDA-Public Use
  Company Number: US-ASTRAZENECA-2021A391226

PATIENT
  Age: 72 Year
  Sex: Male
  Weight: 77.1 kg

DRUGS (2)
  1. NEBULIZER [Concomitant]
     Active Substance: DEVICE
  2. FASENRA [Suspect]
     Active Substance: BENRALIZUMAB
     Indication: ASTHMA
     Route: 058
     Dates: end: 202011

REACTIONS (2)
  - Dyspnoea [Not Recovered/Not Resolved]
  - Asthma [Unknown]
